FAERS Safety Report 8381082-1 (Version None)
Quarter: 2012Q1

REPORT INFORMATION
  Report Type: 
  Country: None (occurrence: None)
  Receive Date: 20120323
  Receipt Date: 20110603
  Transmission Date: 20120608
  Serious: Yes (Hospitalization)
  Sender: FDA-Public Use
  Company Number: 163-21880-11032950

PATIENT
  Age: 80 Year
  Sex: Female

DRUGS (7)
  1. BORTEZOMIB [Concomitant]
  2. REVLIMID [Suspect]
     Indication: MULTIPLE MYELOMA
     Dosage: 25 MG, 1 IN 1 D, PO ; 10 MG, 1 IN 1 D, PO ; 25-10MG, PO
     Route: 048
     Dates: start: 20070330
  3. REVLIMID [Suspect]
     Indication: MULTIPLE MYELOMA
     Dosage: 25 MG, 1 IN 1 D, PO ; 10 MG, 1 IN 1 D, PO ; 25-10MG, PO
     Route: 048
     Dates: start: 20110101
  4. REVLIMID [Suspect]
     Indication: MULTIPLE MYELOMA
     Dosage: 25 MG, 1 IN 1 D, PO ; 10 MG, 1 IN 1 D, PO ; 25-10MG, PO
     Route: 048
     Dates: start: 20090401
  5. REVLIMID [Suspect]
     Indication: MULTIPLE MYELOMA
     Dosage: 25 MG, 1 IN 1 D, PO ; 10 MG, 1 IN 1 D, PO ; 25-10MG, PO
     Route: 048
     Dates: start: 20070401
  6. DEXAMETHASONE [Concomitant]
  7. ZOLEDRONIC ACID [Concomitant]

REACTIONS (1)
  - HERPES ZOSTER [None]
